FAERS Safety Report 10451198 (Version 1)
Quarter: 2014Q3

REPORT INFORMATION
  Report Type: Spontaneous
  Country: FR (occurrence: FR)
  Receive Date: 20140912
  Receipt Date: 20140912
  Transmission Date: 20150326
  Serious: Yes (Hospitalization)
  Sender: FDA-Public Use
  Company Number: PHHY2014FR117551

PATIENT
  Sex: Female

DRUGS (1)
  1. PARACETAMOL [Suspect]
     Active Substance: ACETAMINOPHEN

REACTIONS (10)
  - Shock [Recovered/Resolved]
  - Acute hepatic failure [Recovered/Resolved]
  - Musculoskeletal stiffness [Recovered/Resolved]
  - Multi-organ failure [Recovered/Resolved]
  - Colonic haematoma [Recovered/Resolved]
  - Intestinal ischaemia [Recovered/Resolved]
  - Blood creatine phosphokinase increased [Recovered/Resolved]
  - Gastric mucosal lesion [Recovered/Resolved]
  - Coma [Recovered/Resolved]
  - Toxicity to various agents [Recovered/Resolved]
